FAERS Safety Report 10909348 (Version 1)
Quarter: 2015Q1

REPORT INFORMATION
  Report Type: Spontaneous
  Country: US (occurrence: US)
  Receive Date: 20150312
  Receipt Date: 20150312
  Transmission Date: 20150721
  Serious: No
  Sender: FDA-Public Use
  Company Number: US-SA-2014SA052104

PATIENT
  Sex: Male

DRUGS (2)
  1. NASACORT ALLERGY 24HR [Suspect]
     Active Substance: TRIAMCINOLONE ACETONIDE
     Indication: HYPERSENSITIVITY
     Dosage: HE INCREASED DOSE TO TWO SPRAYS IN EACH NOSTRIL TWICE DAILY
     Route: 045
     Dates: end: 201404
  2. NASACORT ALLERGY 24HR [Suspect]
     Active Substance: TRIAMCINOLONE ACETONIDE
     Indication: HYPERSENSITIVITY
     Dosage: TWO SPRAYS IN EACH NOSTRIL ONCE DAILY, BUT ^IT DID NOT WORK^.
     Route: 045
     Dates: start: 201404

REACTIONS (4)
  - Rhinorrhoea [Unknown]
  - Eye pain [Not Recovered/Not Resolved]
  - Drug ineffective [Unknown]
  - Drug effect incomplete [Unknown]

NARRATIVE: CASE EVENT DATE: 201404
